FAERS Safety Report 6450575-6 (Version None)
Quarter: 2009Q4

REPORT INFORMATION
  Report Type: 
  Country: None (occurrence: None)
  Receive Date: 20091123
  Receipt Date: 20091110
  Transmission Date: 20100525
  Serious: Yes (Hospitalization)
  Sender: FDA-Public Use
  Company Number: US-SANOFI-AVENTIS-200918639US

PATIENT
  Age: 62 Year
  Sex: Female
  Weight: 76 kg

DRUGS (7)
  1. INSULIN GLARGINE [Suspect]
     Dosage: DOSE:6 UNIT(S)
     Route: 058
     Dates: start: 20070101
  2. INSULIN GLULISINE [Suspect]
     Dosage: DOSE AS USED: 2-4 UNITS SLIDING SCALE
     Route: 058
     Dates: start: 20070101
  3. OPTICLICK [Suspect]
     Dates: start: 20010101, end: 20090101
  4. PLAVIX [Concomitant]
  5. ASPIRIN [Concomitant]
  6. SYNTHROID [Concomitant]
  7. ALL OTHER THERAPEUTIC PRODUCTS [Concomitant]

REACTIONS (2)
  - EXPIRED DRUG ADMINISTERED [None]
  - MYOCARDIAL INFARCTION [None]
